FAERS Safety Report 26053576 (Version 1)
Quarter: 2025Q4

REPORT INFORMATION
  Report Type: Spontaneous
  Country: US (occurrence: None)
  Receive Date: 20251116
  Receipt Date: 20251116
  Transmission Date: 20260118
  Serious: Yes (Disabling, Other)
  Sender: FDA-CTU
  Company Number: None

PATIENT
  Age: 54 Year
  Sex: Female
  Weight: 65.25 kg

DRUGS (5)
  1. KETAMINE [Suspect]
     Active Substance: KETAMINE
     Indication: Depression
     Dates: end: 20240228
  2. hormaone replacements [Concomitant]
  3. pantroprozole [Concomitant]
  4. BUSPAR [Concomitant]
     Active Substance: BUSPIRONE HYDROCHLORIDE
  5. GABAPENTIN [Concomitant]
     Active Substance: GABAPENTIN

REACTIONS (4)
  - Product prescribing issue [None]
  - Drug dependence [None]
  - Abnormal behaviour [None]
  - Intentional product misuse [None]

NARRATIVE: CASE EVENT DATE: 20240228
